FAERS Safety Report 9965907 (Version 1)
Quarter: 2014Q1

REPORT INFORMATION
  Report Type: Report from Study
  Country: US (occurrence: US)
  Receive Date: 20140305
  Receipt Date: 20140305
  Transmission Date: 20141002
  Serious: No
  Sender: FDA-Public Use
  Company Number: US-ABBVIE-13P-163-1124091-00

PATIENT
  Sex: Female

DRUGS (5)
  1. HUMIRA [Suspect]
     Indication: PSORIATIC ARTHROPATHY
  2. IBUPROFEN [Concomitant]
     Indication: PAIN
  3. LISINOPRIL [Concomitant]
     Indication: HYPERTENSION
     Dosage: 10MG DAILY
  4. ZYRTEC [Concomitant]
     Indication: HYPERSENSITIVITY
     Route: 048
  5. UNKNOWN ALLERGY INJECTIONS [Concomitant]
     Indication: HYPERSENSITIVITY
     Route: 050

REACTIONS (1)
  - Injection site pain [Recovered/Resolved]
